FAERS Safety Report 6741381-3 (Version None)
Quarter: 2010Q2

REPORT INFORMATION
  Report Type: 
  Country: None (occurrence: None)
  Receive Date: 20100526
  Receipt Date: 20100518
  Transmission Date: 20101027
  Serious: Yes (Hospitalization)
  Sender: FDA-Public Use
  Company Number: ES-BAYER-201025643GPV

PATIENT
  Age: 73 Year
  Sex: Male

DRUGS (5)
  1. ASPIRIN [Suspect]
     Indication: HYPERTENSION
     Route: 048
  2. MICARDIS [Interacting]
     Indication: THROMBOSIS PROPHYLAXIS
     Route: 048
     Dates: start: 20081024, end: 20081106
  3. NORVASC [Interacting]
     Indication: TYPE 2 DIABETES MELLITUS
     Dosage: AS USED: 20/5 MG
     Route: 048
     Dates: start: 20070101
  4. SEGURIL [Interacting]
     Indication: HYPERTENSION
     Route: 048
     Dates: start: 20081024, end: 20081106
  5. EMCONCOR [Interacting]
     Indication: ISCHAEMIC CARDIOMYOPATHY
     Route: 048
     Dates: start: 20060101

REACTIONS (3)
  - HYPERKALAEMIA [None]
  - NODAL RHYTHM [None]
  - RENAL FAILURE ACUTE [None]
